FAERS Safety Report 16428876 (Version 3)
Quarter: 2019Q2

REPORT INFORMATION
  Report Type: Report from Study
  Country: DE (occurrence: DE)
  Receive Date: 20190613
  Receipt Date: 20190625
  Transmission Date: 20190711
  Serious: Yes (Hospitalization)
  Sender: FDA-Public Use
  Company Number: PHHO2017DE008470

PATIENT
  Age: 15 Year
  Sex: Female
  Weight: 72.8 kg

DRUGS (7)
  1. NEORAL [Suspect]
     Active Substance: CYCLOSPORINE
     Indication: RENAL TRANSPLANT
     Dosage: 80 MG, BID
     Route: 048
     Dates: start: 20170323
  2. NEORAL [Suspect]
     Active Substance: CYCLOSPORINE
     Dosage: 90 MG, BID
     Route: 048
     Dates: start: 20170919
  3. PREDNISOLONE SANDOZ [Suspect]
     Active Substance: PREDNISOLONE
     Indication: RENAL TRANSPLANT
     Dosage: 5 MG, QD
     Route: 048
     Dates: start: 20170323
  4. EVEROLIMUS. [Suspect]
     Active Substance: EVEROLIMUS
     Indication: RENAL TRANSPLANT
     Dosage: 1.2 MG, BID
     Route: 048
     Dates: start: 20170421
  5. NEORAL [Suspect]
     Active Substance: CYCLOSPORINE
     Dosage: 100 MG, BID
     Route: 048
     Dates: start: 20170921
  6. PREDNISOLONE SANDOZ [Suspect]
     Active Substance: PREDNISOLONE
     Dosage: 500 MG, TID
     Route: 048
  7. PREDNISOLONE SANDOZ [Suspect]
     Active Substance: PREDNISOLONE
     Dosage: 500 MG, UNK
     Route: 048

REACTIONS (6)
  - Kidney transplant rejection [Recovered/Resolved]
  - Kidney transplant rejection [Recovering/Resolving]
  - Abdominal injury [Recovered/Resolved]
  - Viral infection [Recovered/Resolved]
  - Ear infection [Recovered/Resolved]
  - Paronychia [Recovered/Resolved]

NARRATIVE: CASE EVENT DATE: 20170521
